FAERS Safety Report 24307978 (Version 3)
Quarter: 2024Q4

REPORT INFORMATION
  Report Type: Report from Study
  Country: US (occurrence: US)
  Receive Date: 20240911
  Receipt Date: 20241231
  Transmission Date: 20250115
  Serious: Yes (Other)
  Sender: SUNOVION
  Company Number: US-SUMITOMO PHARMA SWITZERLAND GMBH-2024SPA001909

PATIENT

DRUGS (2)
  1. ORGOVYX [Suspect]
     Active Substance: RELUGOLIX
     Indication: Prostate cancer
     Dosage: 360 MG
     Route: 048
     Dates: start: 20240624, end: 20240624
  2. ORGOVYX [Suspect]
     Active Substance: RELUGOLIX
     Dosage: 120 MG, QD
     Route: 048
     Dates: start: 20240625

REACTIONS (9)
  - Lower respiratory tract infection [Unknown]
  - Hot flush [Unknown]
  - Fatigue [Unknown]
  - Libido decreased [Unknown]
  - Weight increased [Unknown]
  - Asthenia [Unknown]
  - Insomnia [Unknown]
  - Palpitations [Unknown]
  - Tooth infection [Unknown]

NARRATIVE: CASE EVENT DATE: 20240101
